FAERS Safety Report 19232112 (Version 2)
Quarter: 2021Q2

REPORT INFORMATION
  Report Type: Spontaneous
  Country: NO (occurrence: NO)
  Receive Date: 20210507
  Receipt Date: 20210601
  Transmission Date: 20210717
  Serious: Yes (Hospitalization, Other)
  Sender: FDA-Public Use
  Company Number: NO-BRISTOL-MYERS SQUIBB COMPANY-BMS-2021-043397

PATIENT
  Age: 77 Year
  Sex: Female

DRUGS (17)
  1. METOPROLOL TARTRATE. [Concomitant]
     Active Substance: METOPROLOL TARTRATE
     Indication: PROPHYLAXIS
     Dosage: 75 MILLIGRAM, QD
     Route: 048
  2. MEDROL [Concomitant]
     Active Substance: METHYLPREDNISOLONE
     Dosage: 8 MILLIGRAM, QD
     Route: 048
  3. SOMAC [Concomitant]
     Active Substance: PANTOPRAZOLE SODIUM
     Indication: PROPHYLAXIS AGAINST GASTROINTESTINAL ULCER
     Dosage: 40 MILLIGRAM, QD
     Route: 048
  4. FOLSYRE ORIFARM [Concomitant]
     Indication: VITAMIN SUPPLEMENTATION
     Dosage: 1 MILLIGRAM, QD
     Route: 048
  5. KALIUMKLORID ORIFARM [Concomitant]
     Indication: MINERAL SUPPLEMENTATION
     Dosage: 1 DOSAGE FORM, QD
     Route: 048
  6. MOVICOL [Concomitant]
     Active Substance: POLYETHYLENE GLYCOL 3350\POTASSIUM CHLORIDE\SODIUM BICARBONATE\SODIUM CHLORIDE
     Indication: CONSTIPATION
     Dosage: 1 DOSAGE FORM, Q12H
     Route: 048
  7. LETROZOL ORIFARM [Concomitant]
     Active Substance: LETROZOLE
     Indication: ADJUVANT THERAPY
     Dosage: 2 MILLIGRAM, QD
     Route: 048
  8. LIPITOR [Concomitant]
     Active Substance: ATORVASTATIN CALCIUM
     Indication: BLOOD CHOLESTEROL INCREASED
     Dosage: 20 MILLIGRAM, QD
     Route: 048
  9. ELIQUIS [Suspect]
     Active Substance: APIXABAN
     Indication: CEREBROVASCULAR ACCIDENT PROPHYLAXIS
     Dosage: 5 MILLIGRAM, BID
     Route: 048
     Dates: start: 20210223, end: 20210316
  10. PIPERACILLIN/TAZOBACTAM [Concomitant]
     Active Substance: PIPERACILLIN SODIUM\TAZOBACTAM SODIUM
     Indication: WOUND INFECTION
     Dosage: 1 DOSAGE FORM, Q8H
     Route: 042
  11. MEDROL [Concomitant]
     Active Substance: METHYLPREDNISOLONE
     Indication: OEDEMA
     Dosage: 4 MILLIGRAM, QD
     Route: 048
  12. PARACET [PARACETAMOL] [Concomitant]
     Indication: PAIN
     Dosage: 1 GRAM, TID
     Route: 048
  13. FURIX [FUROSEMIDE] [Concomitant]
     Active Substance: FUROSEMIDE
     Indication: POLYURIA
     Dosage: 2 TABLETS MORNING 1 TABLET EVENING
     Route: 048
  14. NOVORAPID [Concomitant]
     Active Substance: INSULIN ASPART
     Indication: BLOOD GLUCOSE INCREASED
     Dosage: 1 DOSAGE FORM AS NECESSARY
     Route: 058
  15. KLEXANE [Suspect]
     Active Substance: ENOXAPARIN
     Indication: THROMBOSIS PROPHYLAXIS
     Dosage: 40 MILLIGRAM, QD
     Route: 058
     Dates: start: 20201206, end: 20210223
  16. OXYCONTIN [Concomitant]
     Active Substance: OXYCODONE HYDROCHLORIDE
     Indication: PAIN
     Dosage: 10 MILLIGRAM, BID
     Route: 048
  17. OXYNORM [Concomitant]
     Active Substance: OXYCODONE HYDROCHLORIDE
     Indication: PAIN
     Dosage: 1 DOSAGE FORM AS NECESSARY
     Route: 048

REACTIONS (3)
  - Skin necrosis [Not Recovered/Not Resolved]
  - Condition aggravated [Not Recovered/Not Resolved]
  - Cellulitis [Not Recovered/Not Resolved]

NARRATIVE: CASE EVENT DATE: 20210316
